FAERS Safety Report 7414931-1 (Version None)
Quarter: 2011Q2

REPORT INFORMATION
  Report Type: 
  Country: None (occurrence: None)
  Receive Date: 20110414
  Receipt Date: 20110311
  Transmission Date: 20111010
  Serious: Yes (Other)
  Sender: FDA-Public Use
  Company Number: US-BAYER-201040924NA

PATIENT
  Sex: Female
  Weight: 52.154 kg

DRUGS (2)
  1. OCELLA [Suspect]
     Indication: ORAL CONTRACEPTION
     Dosage: UNK
     Dates: start: 20061209, end: 20091207
  2. YASMIN [Suspect]
     Indication: ORAL CONTRACEPTION
     Dosage: UNK
     Dates: start: 20020801, end: 20100201

REACTIONS (9)
  - FAT INTOLERANCE [None]
  - ABDOMINAL PAIN UPPER [None]
  - PAIN [None]
  - CHOLELITHIASIS [None]
  - DISCOMFORT [None]
  - NAUSEA [None]
  - VOMITING [None]
  - GALLBLADDER DISORDER [None]
  - DIARRHOEA [None]
